FAERS Safety Report 5929744-7 (Version None)
Quarter: 2008Q4

REPORT INFORMATION
  Report Type: 
  Country: None (occurrence: None)
  Receive Date: 20081021
  Receipt Date: 20081007
  Transmission Date: 20090506
  Serious: Yes (Death, Hospitalization, Congenital Anomaly)
  Sender: FDA-Public Use
  Company Number: WAES 0810NLD00008

PATIENT
  Sex: Female

DRUGS (1)
  1. ALDOMET [Suspect]
     Indication: HYPERTENSION
     Dosage: 250 MG/TID, PO
     Route: 048
     Dates: start: 20071010

REACTIONS (2)
  - CONGENITAL CARDIOVASCULAR ANOMALY [None]
  - DRUG EXPOSURE DURING PREGNANCY [None]
